FAERS Safety Report 18192662 (Version 3)
Quarter: 2020Q3

REPORT INFORMATION
  Report Type: Report from Study
  Country: IT (occurrence: IT)
  Receive Date: 20200825
  Receipt Date: 20200904
  Transmission Date: 20201103
  Serious: Yes (Other)
  Sender: FDA-Public Use
  Company Number: IT-ASTRAZENECA-2020SF06238

PATIENT
  Age: 5377 Day
  Sex: Female
  Weight: 40 kg

DRUGS (3)
  1. AMOXICILLINE?CLAVULANATE [Concomitant]
     Route: 065
     Dates: start: 20200816
  2. SELUMETINIB. [Suspect]
     Active Substance: SELUMETINIB
     Indication: NEUROFIBROMATOSIS
     Dosage: BSA ADJUSTED
     Route: 048
     Dates: start: 20200617
  3. SELUMETINIB. [Suspect]
     Active Substance: SELUMETINIB
     Indication: NEUROFIBROMATOSIS
     Dosage: BSA ADJUSTED
     Route: 048
     Dates: start: 20200617

REACTIONS (2)
  - Dermatitis acneiform [Recovered/Resolved]
  - Nail infection [Not Recovered/Not Resolved]

NARRATIVE: CASE EVENT DATE: 20200701
